FAERS Safety Report 20961973 (Version 1)
Quarter: 2022Q2

REPORT INFORMATION
  Report Type: Spontaneous
  Country: NO (occurrence: NO)
  Receive Date: 20220615
  Receipt Date: 20220615
  Transmission Date: 20220721
  Serious: Yes (Hospitalization)
  Sender: FDA-Public Use
  Company Number: None

PATIENT
  Age: 63 Year
  Sex: Male

DRUGS (6)
  1. FLUOROURACIL [Suspect]
     Active Substance: FLUOROURACIL
     Indication: Colon cancer metastatic
     Dosage: STRENGTH: 50, FLIRI: 1060 MG DAY 1 AND 1060 MG DAY 2
     Route: 042
     Dates: start: 20220209, end: 20220309
  2. VECTIBIX [Concomitant]
     Active Substance: PANITUMUMAB
     Indication: Colon cancer metastatic
     Dosage: DAY 1: 546 MG
     Route: 042
  3. LEUCOVORIN CALCIUM [Concomitant]
     Active Substance: LEUCOVORIN CALCIUM
     Indication: Colon cancer metastatic
     Dosage: FLIRI: 100 MG DAY 1 AND 100 MG DAY 2
     Route: 042
     Dates: start: 20220209
  4. AMLODIPINE [Concomitant]
     Active Substance: AMLODIPINE BESYLATE
     Indication: Hypertension
     Route: 048
     Dates: end: 20220214
  5. IRINOTECAN [Concomitant]
     Active Substance: IRINOTECAN
     Indication: Colon cancer metastatic
     Dosage: FLIRI: 380 MG DAY 1
     Route: 042
     Dates: start: 20220209
  6. DOXYCYCLINE [Concomitant]
     Active Substance: DOXYCYCLINE
     Indication: Rash
     Dosage: 100 MG X 1
     Route: 048
     Dates: start: 20220209

REACTIONS (3)
  - Sinus bradycardia [Recovering/Resolving]
  - Dyspnoea [Recovered/Resolved]
  - Dizziness [Recovered/Resolved]

NARRATIVE: CASE EVENT DATE: 20220210
